FAERS Safety Report 22077085 (Version 1)
Quarter: 2023Q1

REPORT INFORMATION
  Report Type: Spontaneous
  Country: US (occurrence: US)
  Receive Date: 20230309
  Receipt Date: 20230309
  Transmission Date: 20230418
  Serious: Yes (Other)
  Sender: FDA-Public Use
  Company Number: US-STRIDES ARCOLAB LIMITED-2023SP000165

PATIENT
  Age: 57 Year
  Sex: Female

DRUGS (6)
  1. PREDNISOLONE [Suspect]
     Active Substance: PREDNISOLONE
     Indication: Sarcoidosis
     Dosage: 60 MILLIGRAM, QD
     Route: 065
  2. PREDNISOLONE [Suspect]
     Active Substance: PREDNISOLONE
     Indication: Portal hypertension
     Dosage: 20 MILLIGRAM, QD
     Route: 065
  3. PREDNISOLONE [Suspect]
     Active Substance: PREDNISOLONE
     Dosage: 5 MILLIGRAM, QD
     Route: 065
  4. METHOTREXATE [Suspect]
     Active Substance: METHOTREXATE
     Indication: Sarcoidosis
     Dosage: UNK
     Route: 065
  5. METHOTREXATE [Suspect]
     Active Substance: METHOTREXATE
     Indication: Portal hypertension
  6. PRAZIQUANTEL [Concomitant]
     Active Substance: PRAZIQUANTEL
     Indication: Schistosomiasis
     Dosage: UNK
     Route: 065

REACTIONS (3)
  - Steroid diabetes [Unknown]
  - Hypervolaemia [Unknown]
  - Off label use [Unknown]
